FAERS Safety Report 13292024 (Version 1)
Quarter: 2017Q1

REPORT INFORMATION
  Report Type: Spontaneous
  Country: CN (occurrence: CN)
  Receive Date: 20170303
  Receipt Date: 20170303
  Transmission Date: 20170428
  Serious: Yes (Life-Threatening)
  Sender: FDA-Public Use
  Company Number: CN-ASTELLAS-2017US008321

PATIENT
  Age: 26 Year
  Sex: Female
  Weight: 40 kg

DRUGS (1)
  1. PROGRAF [Suspect]
     Active Substance: TACROLIMUS\TACROLIMUS ANHYDROUS
     Indication: PROPHYLAXIS AGAINST TRANSPLANT REJECTION
     Dosage: UNK, TWICE DAILY
     Route: 048
     Dates: start: 20130902, end: 20170210

REACTIONS (2)
  - Off label use [Recovered/Resolved]
  - Hypertensive encephalopathy [Recovering/Resolving]

NARRATIVE: CASE EVENT DATE: 20130902
